FAERS Safety Report 21483718 (Version 1)
Quarter: 2022Q4

REPORT INFORMATION
  Report Type: Spontaneous
  Country: RS (occurrence: RS)
  Receive Date: 20221020
  Receipt Date: 20221020
  Transmission Date: 20230112
  Serious: Yes (Other)
  Sender: FDA-Public Use
  Company Number: RS-SA-2022SA421800

PATIENT

DRUGS (2)
  1. CLOPIDOGREL BISULFATE [Suspect]
     Active Substance: CLOPIDOGREL BISULFATE
     Dosage: 75 MG
  2. ASPIRIN [Suspect]
     Active Substance: ASPIRIN
     Dosage: 100 MG

REACTIONS (2)
  - Haemorrhoids [Unknown]
  - Gastrointestinal haemorrhage [Unknown]
